FAERS Safety Report 7175579 (Version 5)
Quarter: 2013Q1

REPORT INFORMATION
  Report Type: Spontaneous
  Country: JP (occurrence: JP)
  Receive Date: 20091112
  Receipt Date: 20130308
  Transmission Date: 20140127
  Serious: Yes (Other)
  Sender: FDA-Public Use
  Company Number: JP-ABBOTT-09P-087-0608034-00

PATIENT
  Age: 1 Year
  Sex: Female
  Weight: 6.9 kg

DRUGS (6)
  1. SEVOFLURANE [Suspect]
     Indication: MAINTENANCE OF ANAESTHESIA
     Dosage: 2%-5%
     Route: 055
     Dates: start: 20090528, end: 20090528
  2. THIAMYLAL SODIUM [Concomitant]
     Indication: INDUCTION OF ANAESTHESIA
     Dosage: UNKNOWN
     Route: 042
     Dates: start: 20090528, end: 20090528
  3. PROPOFOL [Concomitant]
     Indication: PRODUCT USED FOR UNKNOWN INDICATION
  4. ROCURONIUM [Concomitant]
     Indication: HYPOTONIA
     Dates: start: 20090528, end: 20090528
  5. MIDAZOLAM [Concomitant]
     Indication: ANAESTHETIC PREMEDICATION
     Route: 048
     Dates: start: 20090528, end: 20090528
  6. ATROPINE SULFATE [Concomitant]
     Indication: MAINTENANCE OF ANAESTHESIA
     Route: 042
     Dates: start: 20090528, end: 20090528

REACTIONS (1)
  - Intracranial pressure increased [Recovered/Resolved]
